FAERS Safety Report 9129817 (Version 1)
Quarter: 2013Q1

REPORT INFORMATION
  Report Type: Spontaneous
  Country: US (occurrence: US)
  Receive Date: 20130228
  Receipt Date: 20130228
  Transmission Date: 20140127
  Serious: Yes (Hospitalization)
  Sender: FDA-Public Use
  Company Number: US-B.I. PHARMACEUTICALS,INC./RIDGEFIELD-2013-BI-05033BP

PATIENT
  Age: 75 Year
  Sex: Male

DRUGS (2)
  1. PRADAXA [Suspect]
     Indication: ATRIAL FIBRILLATION
     Dosage: 300 MG
     Route: 048
     Dates: end: 201302
  2. ASPIRIN [Concomitant]

REACTIONS (4)
  - Haemorrhage [Unknown]
  - Pericardial effusion [Unknown]
  - Glomerular filtration rate decreased [Recovered/Resolved]
  - Glomerular filtration rate increased [Unknown]
